FAERS Safety Report 23982256 (Version 1)
Quarter: 2024Q2

REPORT INFORMATION
  Report Type: Spontaneous
  Country: IN (occurrence: IN)
  Receive Date: 20240617
  Receipt Date: 20240617
  Transmission Date: 20240715
  Serious: Yes (Hospitalization, Other)
  Sender: FDA-Public Use
  Company Number: IN-EPICPHARMA-IN-2024EPCLIT00686

PATIENT
  Age: 58 Year
  Sex: Female
  Weight: 42 kg

DRUGS (5)
  1. CEFTRIAXONE SODIUM [Suspect]
     Active Substance: CEFTRIAXONE SODIUM
     Indication: Infection prophylaxis
     Route: 042
  2. LIDOCAINE [Concomitant]
     Active Substance: LIDOCAINE
     Indication: Ventricular tachycardia
     Route: 065
  3. HYDROCORTISONE [Concomitant]
     Active Substance: HYDROCORTISONE\HYDROCORTISONE ACETATE
     Indication: Anaphylactic reaction
     Route: 065
  4. PHENIRAMINE [Concomitant]
     Active Substance: PHENIRAMINE
     Indication: Anaphylactic reaction
     Route: 065
  5. NITROGLYCERIN [Concomitant]
     Active Substance: NITROGLYCERIN
     Indication: Anaphylactic reaction
     Route: 065

REACTIONS (1)
  - Kounis syndrome [Recovered/Resolved]
